FAERS Safety Report 16599875 (Version 1)
Quarter: 2019Q3

REPORT INFORMATION
  Report Type: Report from Study
  Country: KR (occurrence: KR)
  Receive Date: 20190720
  Receipt Date: 20190720
  Transmission Date: 20191004
  Serious: Yes (Hospitalization)
  Sender: FDA-Public Use
  Company Number: KR-ROCHE-1997010

PATIENT
  Age: 53 Year
  Sex: Male
  Weight: 74 kg

DRUGS (55)
  1. ATEZOLIZUMAB. [Suspect]
     Active Substance: ATEZOLIZUMAB
     Indication: COLORECTAL CANCER METASTATIC
     Dosage: DATE OF MOST RECENT DOSE OF STUDY DRUG PRIOR TO AE ONSET 06/SEP/2017 AT 15:57 (840 MG)
     Route: 042
     Dates: start: 20170906
  2. ALOXI [Concomitant]
     Active Substance: PALONOSETRON HYDROCHLORIDE
     Route: 065
     Dates: start: 20170517, end: 20170517
  3. ALOXI [Concomitant]
     Active Substance: PALONOSETRON HYDROCHLORIDE
     Route: 065
     Dates: start: 20170504, end: 20170504
  4. CONCOR [Concomitant]
     Active Substance: BISOPROLOL FUMARATE
     Route: 065
     Dates: start: 2013
  5. GASTER [FAMOTIDINE] [Concomitant]
     Route: 065
     Dates: start: 20170505, end: 20170507
  6. HEPARIN [Concomitant]
     Active Substance: HEPARIN SODIUM
     Route: 065
     Dates: start: 20170519, end: 20170519
  7. LYRICA [Concomitant]
     Active Substance: PREGABALIN
     Route: 065
     Dates: start: 20170531
  8. ALOXI [Concomitant]
     Active Substance: PALONOSETRON HYDROCHLORIDE
     Indication: PROPHYLAXIS
     Route: 065
     Dates: start: 20170810, end: 20170810
  9. ALOXI [Concomitant]
     Active Substance: PALONOSETRON HYDROCHLORIDE
     Route: 065
     Dates: start: 20170614, end: 20170614
  10. DEXAMETHASONE. [Concomitant]
     Active Substance: DEXAMETHASONE
     Route: 065
     Dates: start: 20170811, end: 20170813
  11. DEXAMETHASONE. [Concomitant]
     Active Substance: DEXAMETHASONE
     Route: 065
     Dates: start: 20170614, end: 20170614
  12. DEXAMETHASONE. [Concomitant]
     Active Substance: DEXAMETHASONE
     Route: 065
     Dates: start: 20170615, end: 20170617
  13. DEXAMETHASONE. [Concomitant]
     Active Substance: DEXAMETHASONE
     Route: 065
     Dates: start: 20170517, end: 20170517
  14. GASTER [FAMOTIDINE] [Concomitant]
     Route: 065
     Dates: start: 20170601, end: 20170603
  15. GASTER [FAMOTIDINE] [Concomitant]
     Route: 065
     Dates: start: 20170629, end: 20170701
  16. HEPARIN [Concomitant]
     Active Substance: HEPARIN SODIUM
     Route: 065
     Dates: start: 20170630, end: 20170630
  17. IRCODON [Concomitant]
     Active Substance: OXYCODONE HYDROCHLORIDE
     Indication: PROCTALGIA
     Route: 065
     Dates: start: 20170726
  18. TARGIN [Concomitant]
     Active Substance: NALOXONE HYDROCHLORIDE\OXYCODONE HYDROCHLORIDE
     Indication: PROCTALGIA
     Dosage: 10/5MG?1 TABLET
     Route: 065
     Dates: start: 20170628
  19. LASIX [Concomitant]
     Active Substance: FUROSEMIDE
     Dosage: PROPHYLAXIS OF INTAKE OUTPUT IMBALANCE.
     Route: 065
     Dates: start: 20170924, end: 20170924
  20. ALOXI [Concomitant]
     Active Substance: PALONOSETRON HYDROCHLORIDE
     Route: 065
     Dates: start: 20170531, end: 20170531
  21. BACLAN [BACLOFEN] [Concomitant]
     Indication: HICCUPS
     Route: 065
     Dates: start: 20170614, end: 20170619
  22. DEXAMETHASONE. [Concomitant]
     Active Substance: DEXAMETHASONE
     Route: 065
     Dates: start: 20170518, end: 20170520
  23. DEXAMETHASONE. [Concomitant]
     Active Substance: DEXAMETHASONE
     Route: 065
     Dates: start: 20170504, end: 20170504
  24. GASTER [FAMOTIDINE] [Concomitant]
     Route: 065
     Dates: start: 20170518, end: 20170520
  25. HEPARIN [Concomitant]
     Active Substance: HEPARIN SODIUM
     Route: 065
     Dates: start: 20170728, end: 20170728
  26. LYRICA [Concomitant]
     Active Substance: PREGABALIN
     Route: 065
     Dates: start: 20170531, end: 20170615
  27. COBIMETINIB. [Suspect]
     Active Substance: COBIMETINIB
     Indication: COLORECTAL CANCER METASTATIC
     Dosage: DATE OF MOST RECENT DOSE OF STUDY DRUG PRIOR TO EVENT ONSET ON 19/SEP/2017 AT 19:00 (40 MG TWICE A D
     Route: 048
     Dates: start: 20170906
  28. DEXAMETHASONE. [Concomitant]
     Active Substance: DEXAMETHASONE
     Route: 065
     Dates: start: 20170712, end: 20170712
  29. DEXAMETHASONE. [Concomitant]
     Active Substance: DEXAMETHASONE
     Route: 065
     Dates: start: 20170601, end: 20170603
  30. DEXAMETHASONE. [Concomitant]
     Active Substance: DEXAMETHASONE
     Route: 065
     Dates: start: 20170505, end: 20170507
  31. GASTER [FAMOTIDINE] [Concomitant]
     Dosage: PROPHYLAXIS OF HEARTBURN
     Route: 065
     Dates: start: 20170923
  32. HEPARIN [Concomitant]
     Active Substance: HEPARIN SODIUM
     Route: 065
     Dates: start: 20170602, end: 20170602
  33. ALOXI [Concomitant]
     Active Substance: PALONOSETRON HYDROCHLORIDE
     Route: 065
     Dates: start: 20170726, end: 20170726
  34. GASTER [FAMOTIDINE] [Concomitant]
     Indication: PROPHYLAXIS
     Route: 065
     Dates: start: 20170713, end: 20170715
  35. ALOXI [Concomitant]
     Active Substance: PALONOSETRON HYDROCHLORIDE
     Route: 065
     Dates: start: 20170712, end: 20170712
  36. DEXAMETHASONE. [Concomitant]
     Active Substance: DEXAMETHASONE
     Indication: PROPHYLAXIS
     Route: 065
     Dates: start: 20170810, end: 20170810
  37. DEXAMETHASONE. [Concomitant]
     Active Substance: DEXAMETHASONE
     Route: 065
     Dates: start: 20170713, end: 20170715
  38. DEXAMETHASONE. [Concomitant]
     Active Substance: DEXAMETHASONE
     Route: 065
     Dates: start: 20170726, end: 20170726
  39. DEXAMETHASONE. [Concomitant]
     Active Substance: DEXAMETHASONE
     Route: 065
     Dates: start: 20170629, end: 20170701
  40. DEXAMETHASONE. [Concomitant]
     Active Substance: DEXAMETHASONE
     Route: 065
     Dates: start: 20170531, end: 20170531
  41. GASTER [FAMOTIDINE] [Concomitant]
     Route: 065
     Dates: start: 20170615, end: 20170617
  42. GASTER [FAMOTIDINE] [Concomitant]
     Route: 065
     Dates: start: 20170727, end: 20170729
  43. PROAMIN [Concomitant]
     Route: 065
     Dates: start: 20170923, end: 20170923
  44. GASTER [FAMOTIDINE] [Concomitant]
     Route: 065
     Dates: start: 20170811, end: 20170813
  45. HEPARIN [Concomitant]
     Active Substance: HEPARIN SODIUM
     Route: 065
     Dates: start: 20170812, end: 20170812
  46. HEPARIN [Concomitant]
     Active Substance: HEPARIN SODIUM
     Route: 065
     Dates: start: 20170616, end: 20170616
  47. ALOXI [Concomitant]
     Active Substance: PALONOSETRON HYDROCHLORIDE
     Route: 065
     Dates: start: 20170628, end: 20170628
  48. BACLAN [BACLOFEN] [Concomitant]
     Route: 065
     Dates: start: 20170628, end: 20170814
  49. DEXAMETHASONE. [Concomitant]
     Active Substance: DEXAMETHASONE
     Route: 065
     Dates: start: 20170727, end: 20170729
  50. DEXAMETHASONE. [Concomitant]
     Active Substance: DEXAMETHASONE
     Route: 065
     Dates: start: 20170628, end: 20170628
  51. HEPARIN [Concomitant]
     Active Substance: HEPARIN SODIUM
     Route: 065
     Dates: start: 20170714, end: 20170714
  52. HEPARIN [Concomitant]
     Active Substance: HEPARIN SODIUM
     Route: 065
     Dates: start: 20170506, end: 20170506
  53. HEPARIN [Concomitant]
     Active Substance: HEPARIN SODIUM
     Route: 065
     Dates: start: 20170906, end: 20170906
  54. LYRICA [Concomitant]
     Active Substance: PREGABALIN
     Indication: PERIPHERAL SENSORY NEUROPATHY
     Route: 065
     Dates: start: 20170712
  55. POTASSIUM CHLORIDE/SODIUM CHLORIDE [Concomitant]
     Active Substance: POTASSIUM CHLORIDE\SODIUM CHLORIDE
     Route: 065
     Dates: start: 20170925, end: 20170925

REACTIONS (2)
  - Diarrhoea [Recovered/Resolved]
  - Immune-mediated enterocolitis [Recovered/Resolved]

NARRATIVE: CASE EVENT DATE: 20170910
